FAERS Safety Report 25617552 (Version 2)
Quarter: 2025Q3

REPORT INFORMATION
  Report Type: Spontaneous
  Country: US (occurrence: US)
  Receive Date: 20250729
  Receipt Date: 20250821
  Transmission Date: 20251020
  Serious: No
  Sender: CHATTEM
  Company Number: US-OPELLA-2025OHG022878

PATIENT
  Age: 71 Year
  Sex: Male

DRUGS (1)
  1. NASACORT ALLERGY 24HR [Suspect]
     Active Substance: TRIAMCINOLONE ACETONIDE
     Indication: Nasal congestion
     Dosage: STRENGTH/UNITS: 55 ?G/DOSE?TWICE A DAY, EVERY MORNING AND AFTERNOON

REACTIONS (2)
  - Inappropriate schedule of product administration [Unknown]
  - No adverse event [Unknown]
